FAERS Safety Report 19752679 (Version 1)
Quarter: 2021Q3

REPORT INFORMATION
  Report Type: Spontaneous
  Country: JP (occurrence: JP)
  Receive Date: 20210827
  Receipt Date: 20210827
  Transmission Date: 20211014
  Serious: Yes (Other)
  Sender: FDA-Public Use
  Company Number: JP-SAKK-2021SA278878AA

PATIENT
  Age: 16 Year
  Sex: Female

DRUGS (1)
  1. INSULIN LISPRO BS INJECTION SOLOSTAR HU [SANOFI] [Suspect]
     Active Substance: INSULIN LISPRO
     Indication: TYPE 1 DIABETES MELLITUS
     Route: 058

REACTIONS (4)
  - Enterocolitis [Recovered/Resolved]
  - Weight decreased [Recovered/Resolved]
  - Gastrooesophageal reflux disease [Recovered/Resolved]
  - Abdominal pain [Recovered/Resolved]
